FAERS Safety Report 24432823 (Version 2)
Quarter: 2025Q1

REPORT INFORMATION
  Report Type: Spontaneous
  Country: US (occurrence: US)
  Receive Date: 20241014
  Receipt Date: 20250103
  Transmission Date: 20250409
  Serious: No
  Sender: BAYER HEALTHCARE LLC
  Company Number: US-BAYER-2024A142557

PATIENT
  Age: 68 Year
  Sex: Female

DRUGS (5)
  1. ASTEPRO [Suspect]
     Active Substance: AZELASTINE HYDROCHLORIDE
     Indication: Nasopharyngitis
     Route: 055
     Dates: start: 202409, end: 202410
  2. ASTEPRO [Suspect]
     Active Substance: AZELASTINE HYDROCHLORIDE
     Indication: Hypersensitivity
  3. AZELASTINE HYDROCHLORIDE [Suspect]
     Active Substance: AZELASTINE HYDROCHLORIDE
  4. SYNTHROID [Concomitant]
     Active Substance: LEVOTHYROXINE SODIUM
  5. PRIMIDONE [Concomitant]
     Active Substance: PRIMIDONE

REACTIONS (4)
  - Epistaxis [Unknown]
  - Manufacturing materials issue [None]
  - Product expiration date issue [None]
  - Product lot number issue [None]

NARRATIVE: CASE EVENT DATE: 20240901
